FAERS Safety Report 4471552-0 (Version None)
Quarter: 2004Q4

REPORT INFORMATION
  Report Type: 
  Country: None (occurrence: None)
  Receive Date: 20041012
  Receipt Date: 20040930
  Transmission Date: 20050328
  Serious: Yes (Hospitalization)
  Sender: FDA-Public Use
  Company Number: CA-AMGEN-US093925

PATIENT
  Sex: Female

DRUGS (9)
  1. ENBREL [Suspect]
     Indication: RHEUMATOID ARTHRITIS
     Route: 058
     Dates: end: 20031101
  2. RANITIDINE [Suspect]
  3. PLAQUENIL [Suspect]
  4. ALTACE [Concomitant]
  5. PINDOLOL [Concomitant]
  6. ASPIRIN [Concomitant]
  7. LOVASTATIN [Concomitant]
  8. SYNTHROID [Concomitant]
  9. FOSAMAX [Concomitant]

REACTIONS (2)
  - AGRANULOCYTOSIS [None]
  - SEPSIS [None]
